FAERS Safety Report 9258442 (Version 3)
Quarter: 2016Q3

REPORT INFORMATION
  Report Type: Report from Study
  Country: US (occurrence: US)
  Receive Date: 20130426
  Receipt Date: 20160802
  Transmission Date: 20161109
  Serious: Yes (Life-Threatening, Hospitalization, Other)
  Sender: FDA-Public Use
  Company Number: US-ROCHE-772031

PATIENT
  Age: 62 Year
  Sex: Male
  Weight: 98.2 kg

DRUGS (8)
  1. CISPLATIN. [Suspect]
     Active Substance: CISPLATIN
     Indication: SMALL CELL LUNG CANCER EXTENSIVE STAGE
     Dosage: 75 MG/M2, Q21D, LAST DSOE ON 11/APR/2010
     Route: 042
     Dates: start: 20101012, end: 20110208
  2. VISMODEGIB [Suspect]
     Active Substance: VISMODEGIB
     Dosage: COURSE 8
     Route: 048
     Dates: start: 20110118, end: 20110208
  3. VISMODEGIB [Suspect]
     Active Substance: VISMODEGIB
     Indication: SMALL CELL LUNG CANCER EXTENSIVE STAGE
     Dosage: 150 MG, QD, LAST DOSE ADMINISTERED ON 12/NOV/2010
     Route: 048
     Dates: start: 20100824, end: 20101112
  4. VISMODEGIB [Suspect]
     Active Substance: VISMODEGIB
     Dosage: COURSE 7
     Route: 048
  5. VISMODEGIB [Suspect]
     Active Substance: VISMODEGIB
     Dosage: 150 MG, QD
     Route: 048
     Dates: start: 20101012, end: 20101112
  6. VISMODEGIB [Suspect]
     Active Substance: VISMODEGIB
     Dosage: COURSE 6
     Route: 048
  7. VISMODEGIB [Suspect]
     Active Substance: VISMODEGIB
     Dosage: COURSE 5
     Route: 048
  8. ETOPOSIDE. [Suspect]
     Active Substance: ETOPOSIDE
     Indication: SMALL CELL LUNG CANCER EXTENSIVE STAGE
     Dosage: 100 MG/M2, QDX3D/21DC, LAST DOSE ADMINISTERED ON 06/NOV/2010
     Route: 042
     Dates: start: 20101012, end: 20110208

REACTIONS (15)
  - Headache [Recovered/Resolved]
  - Mood swings [Unknown]
  - Dyspepsia [Recovered/Resolved]
  - Vomiting [Recovered/Resolved]
  - Nausea [Recovered/Resolved]
  - Back pain [Recovered/Resolved]
  - Embolism [Unknown]
  - Abdominal pain [Recovered/Resolved]
  - Constipation [Recovered/Resolved]
  - Neutrophil count decreased [Recovered/Resolved]
  - Memory impairment [Unknown]
  - White blood cell count decreased [Recovered/Resolved]
  - Neutrophil count decreased [Unknown]
  - Hyponatraemia [Recovered/Resolved]
  - Inappropriate antidiuretic hormone secretion [Unknown]

NARRATIVE: CASE EVENT DATE: 20100831
